FAERS Safety Report 4639988-2 (Version None)
Quarter: 2005Q2

REPORT INFORMATION
  Report Type: 
  Country: None (occurrence: None)
  Receive Date: 20050420
  Receipt Date: 20050201
  Transmission Date: 20051028
  Serious: Yes (Death, Hospitalization)
  Sender: FDA-Public Use
  Company Number: 200510200DE

PATIENT
  Sex: Male

DRUGS (1)
  1. TRENTAL [Suspect]
     Indication: TINNITUS
     Dates: start: 20040101, end: 20040101

REACTIONS (2)
  - CEREBRAL HAEMORRHAGE [None]
  - SKIN DISCOLOURATION [None]
